FAERS Safety Report 16945885 (Version 25)
Quarter: 2022Q2

REPORT INFORMATION
  Report Type: Report from Study
  Country: BR (occurrence: None)
  Receive Date: 20191022
  Receipt Date: 20220505
  Transmission Date: 20220721
  Serious: Yes (Life-Threatening, Hospitalization, Disabling)
  Sender: FDA-Public Use
  Company Number: BR-ROCHE-2430912

PATIENT
  Age: 53 Year
  Sex: Female
  Weight: 56 kg

DRUGS (179)
  1. ATEZOLIZUMAB [Suspect]
     Active Substance: ATEZOLIZUMAB
     Indication: Renal cell carcinoma
     Dosage: DATE OF MOST RECENT DOSE OF ATEZOLIZUMAB (1200 MG) PRIOR TO SAE ONSET 16/SEP/2019?START TIME OF MOST
     Route: 041
     Dates: start: 20181026
  2. DIPYRONE [Concomitant]
     Active Substance: DIPYRONE
     Indication: Pneumonia
     Route: 048
     Dates: start: 20190821
  3. DIPYRONE [Concomitant]
     Active Substance: DIPYRONE
     Route: 042
     Dates: start: 20191001, end: 20191011
  4. DIPYRONE [Concomitant]
     Active Substance: DIPYRONE
     Route: 042
     Dates: start: 20191013, end: 20191025
  5. DIPYRONE [Concomitant]
     Active Substance: DIPYRONE
     Route: 042
     Dates: start: 20191027, end: 20191027
  6. DIPYRONE [Concomitant]
     Active Substance: DIPYRONE
     Route: 042
     Dates: start: 20191029, end: 20191030
  7. DIPYRONE [Concomitant]
     Active Substance: DIPYRONE
     Route: 042
     Dates: start: 20191130, end: 20191130
  8. DIPYRONE [Concomitant]
     Active Substance: DIPYRONE
     Route: 042
     Dates: start: 20191215, end: 20191215
  9. CEFUROXIME [Concomitant]
     Active Substance: CEFUROXIME
     Route: 048
     Dates: start: 20190828, end: 20190906
  10. CEFTRIAXONE SODIUM [Concomitant]
     Active Substance: CEFTRIAXONE SODIUM
     Indication: Abdominal infection
     Route: 042
     Dates: start: 20190828, end: 20190828
  11. CEFTRIAXONE SODIUM [Concomitant]
     Active Substance: CEFTRIAXONE SODIUM
     Route: 042
     Dates: start: 20210524, end: 20210531
  12. ACETAMINOPHEN;CHLORPHENIRAMINE MALEATE;PHENYLEPHRINE HCL [Concomitant]
     Route: 048
     Dates: start: 20190826, end: 20190827
  13. METHYLPREDNISOLONE [Concomitant]
     Active Substance: METHYLPREDNISOLONE
     Route: 042
     Dates: start: 20191018, end: 20191024
  14. METHYLPREDNISOLONE [Concomitant]
     Active Substance: METHYLPREDNISOLONE
     Route: 042
     Dates: start: 20191215, end: 20191217
  15. METHYLPREDNISOLONE [Concomitant]
     Active Substance: METHYLPREDNISOLONE
     Dates: start: 20191005, end: 20191005
  16. METHYLPREDNISOLONE [Concomitant]
     Active Substance: METHYLPREDNISOLONE
     Route: 042
     Dates: start: 20200221, end: 20200308
  17. SODIUM CHLORIDE [Concomitant]
     Active Substance: SODIUM CHLORIDE
     Route: 042
     Dates: start: 20191001, end: 20191002
  18. SODIUM CHLORIDE [Concomitant]
     Active Substance: SODIUM CHLORIDE
     Route: 042
     Dates: start: 20191201, end: 20191201
  19. SODIUM BICARBONATE [Concomitant]
     Active Substance: SODIUM BICARBONATE
     Route: 042
     Dates: start: 20191002, end: 20191002
  20. POTASSIUM [Concomitant]
     Active Substance: POTASSIUM
     Route: 042
     Dates: start: 20191020, end: 20191020
  21. POTASSIUM [Concomitant]
     Active Substance: POTASSIUM
     Route: 042
     Dates: start: 20191103, end: 20191103
  22. POTASSIUM [Concomitant]
     Active Substance: POTASSIUM
     Route: 042
     Dates: start: 20191021, end: 20191022
  23. POTASSIUM [Concomitant]
     Active Substance: POTASSIUM
     Route: 042
     Dates: start: 20191014, end: 20191014
  24. ALPRAZOLAM [Concomitant]
     Active Substance: ALPRAZOLAM
     Dates: start: 20191021, end: 20191111
  25. ALPRAZOLAM [Concomitant]
     Active Substance: ALPRAZOLAM
     Route: 048
     Dates: start: 20191029, end: 20191111
  26. SCOPOLAMINE [Concomitant]
     Active Substance: SCOPOLAMINE
     Dates: start: 20191016, end: 20191016
  27. SCOPOLAMINE [Concomitant]
     Active Substance: SCOPOLAMINE
     Dosage: 1 TABLET
     Route: 048
     Dates: start: 20190920, end: 20190925
  28. SCOPOLAMINE [Concomitant]
     Active Substance: SCOPOLAMINE
     Route: 042
     Dates: start: 20191021, end: 20191022
  29. SCOPOLAMINE [Concomitant]
     Active Substance: SCOPOLAMINE
     Route: 042
     Dates: start: 20191215, end: 20191215
  30. SCOPOLAMINE [Concomitant]
     Active Substance: SCOPOLAMINE
     Route: 042
     Dates: start: 20200215, end: 20200215
  31. BROMOPRIDE [Concomitant]
     Active Substance: BROMOPRIDE
     Dates: start: 20191007, end: 20191219
  32. BROMOPRIDE [Concomitant]
     Active Substance: BROMOPRIDE
     Route: 042
     Dates: start: 20200224, end: 20200225
  33. CEFTRIAXONE [Concomitant]
     Active Substance: CEFTRIAXONE
     Route: 042
     Dates: start: 20191001, end: 20191006
  34. BENALET [Concomitant]
     Active Substance: AMMONIUM CHLORIDE\DIPHENHYDRAMINE HYDROCHLORIDE\SODIUM CITRATE
     Dosage: 1 TABLET
     Route: 048
     Dates: start: 20191026, end: 20191026
  35. BENALET [Concomitant]
     Active Substance: AMMONIUM CHLORIDE\DIPHENHYDRAMINE HYDROCHLORIDE\SODIUM CITRATE
     Dosage: 1 TABLET
     Route: 048
     Dates: start: 20191108, end: 20191109
  36. BENALET [Concomitant]
     Active Substance: AMMONIUM CHLORIDE\DIPHENHYDRAMINE HYDROCHLORIDE\SODIUM CITRATE
     Dosage: 1 TABLET
     Route: 048
     Dates: start: 20191110, end: 20191111
  37. BENALET [Concomitant]
     Active Substance: AMMONIUM CHLORIDE\DIPHENHYDRAMINE HYDROCHLORIDE\SODIUM CITRATE
     Dosage: 1 U
     Route: 048
     Dates: start: 20200305, end: 20200309
  38. DIMENHYDRINATE [Concomitant]
     Active Substance: DIMENHYDRINATE
     Route: 042
     Dates: start: 20191021, end: 20191021
  39. DIMENHYDRINATE [Concomitant]
     Active Substance: DIMENHYDRINATE
     Route: 042
     Dates: start: 20191022, end: 20191022
  40. DIMENHYDRINATE [Concomitant]
     Active Substance: DIMENHYDRINATE
     Route: 042
     Dates: start: 20191030, end: 20191101
  41. DIMENHYDRINATE [Concomitant]
     Active Substance: DIMENHYDRINATE
     Route: 042
     Dates: start: 20191109, end: 20191110
  42. DIMENHYDRINATE [Concomitant]
     Active Substance: DIMENHYDRINATE
     Route: 042
     Dates: start: 20200227, end: 20200227
  43. DIMENHYDRINATE [Concomitant]
     Active Substance: DIMENHYDRINATE
     Route: 042
     Dates: start: 20200218, end: 20200218
  44. ENOXAPARIN [Concomitant]
     Active Substance: ENOXAPARIN
     Route: 058
     Dates: start: 20191007, end: 20191027
  45. ERTAPENEM [Concomitant]
     Active Substance: ERTAPENEM
     Route: 042
     Dates: start: 20191006, end: 20191013
  46. SPIRONOLACTONE [Concomitant]
     Active Substance: SPIRONOLACTONE
     Route: 048
     Dates: start: 20191018, end: 20191019
  47. FUROSEMIDE [Concomitant]
     Active Substance: FUROSEMIDE
     Route: 042
     Dates: start: 20191012, end: 20191016
  48. FUROSEMIDE [Concomitant]
     Active Substance: FUROSEMIDE
     Route: 042
     Dates: start: 20191016, end: 20191018
  49. FUROSEMIDE [Concomitant]
     Active Substance: FUROSEMIDE
     Route: 042
     Dates: start: 20191018, end: 20191023
  50. FUROSEMIDE [Concomitant]
     Active Substance: FUROSEMIDE
     Route: 042
     Dates: start: 20191024, end: 20191024
  51. FUROSEMIDE [Concomitant]
     Active Substance: FUROSEMIDE
     Route: 042
     Dates: start: 20191025, end: 20191105
  52. FUROSEMIDE [Concomitant]
     Active Substance: FUROSEMIDE
     Route: 042
     Dates: start: 20191106, end: 20191125
  53. GLYCERIN [Concomitant]
     Active Substance: GLYCERIN
     Route: 054
     Dates: start: 20191008, end: 20191008
  54. IVERMECTIN [Concomitant]
     Active Substance: IVERMECTIN
     Route: 048
     Dates: start: 20191003, end: 20191005
  55. NICOTINE [Concomitant]
     Active Substance: NICOTINE
     Dosage: PATCH
     Dates: start: 20191112, end: 20191121
  56. NICOTINE [Concomitant]
     Active Substance: NICOTINE
     Dosage: PATCH
     Route: 061
     Dates: start: 20191123, end: 20191219
  57. INFLIXIMAB [Concomitant]
     Active Substance: INFLIXIMAB
     Route: 042
     Dates: start: 20191213, end: 20191213
  58. INFLIXIMAB [Concomitant]
     Active Substance: INFLIXIMAB
     Route: 042
     Dates: start: 20200106, end: 20200106
  59. INFLIXIMAB [Concomitant]
     Active Substance: INFLIXIMAB
     Route: 042
     Dates: start: 20200127, end: 20200127
  60. INFLIXIMAB [Concomitant]
     Active Substance: INFLIXIMAB
     Route: 042
     Dates: start: 20200221, end: 20200221
  61. INFLIXIMAB [Concomitant]
     Active Substance: INFLIXIMAB
     Route: 042
     Dates: start: 20200330, end: 20200330
  62. INFLIXIMAB [Concomitant]
     Active Substance: INFLIXIMAB
     Route: 042
     Dates: start: 20200306, end: 20200306
  63. .ALPHA.-TOCOPHEROL ACETATE [Concomitant]
     Active Substance: .ALPHA.-TOCOPHEROL ACETATE
     Route: 061
     Dates: start: 20191027, end: 20191220
  64. .ALPHA.-TOCOPHEROL ACETATE [Concomitant]
     Active Substance: .ALPHA.-TOCOPHEROL ACETATE
     Route: 061
     Dates: start: 20200211, end: 20200309
  65. BROMAZEPAM [Concomitant]
     Active Substance: BROMAZEPAM
     Route: 048
     Dates: start: 20191112, end: 20191220
  66. BROMAZEPAM [Concomitant]
     Active Substance: BROMAZEPAM
     Route: 048
     Dates: start: 20191216, end: 20191219
  67. MEROPENEM [Concomitant]
     Active Substance: MEROPENEM
     Route: 042
     Dates: start: 20191014, end: 20191028
  68. MEROPENEM [Concomitant]
     Active Substance: MEROPENEM
     Route: 042
     Dates: start: 20191031, end: 20191107
  69. MEROPENEM [Concomitant]
     Active Substance: MEROPENEM
     Route: 042
     Dates: start: 20191201, end: 20191203
  70. NEOSTIGMINE [Concomitant]
     Active Substance: NEOSTIGMINE
     Route: 042
     Dates: start: 20191021, end: 20191109
  71. NYSTATIN [Concomitant]
     Active Substance: NYSTATIN
     Dosage: 25000 U PV (PER VAGINA)
     Route: 067
     Dates: start: 20191029, end: 20191201
  72. NYSTATIN [Concomitant]
     Active Substance: NYSTATIN
     Dosage: 25000 U PV (PER VAGINA)
     Route: 067
     Dates: start: 20200219, end: 20200303
  73. OLIMEL [Concomitant]
     Active Substance: AMINO ACIDS\DEXTROSE\SOYBEAN OIL
     Route: 042
     Dates: start: 20191005, end: 20191006
  74. OLIMEL [Concomitant]
     Active Substance: AMINO ACIDS\DEXTROSE\SOYBEAN OIL
     Route: 042
     Dates: start: 20191019, end: 20191019
  75. OLIMEL [Concomitant]
     Active Substance: AMINO ACIDS\DEXTROSE\SOYBEAN OIL
     Route: 042
     Dates: start: 20191007, end: 20191009
  76. OLIMEL [Concomitant]
     Active Substance: AMINO ACIDS\DEXTROSE\SOYBEAN OIL
     Route: 042
     Dates: start: 20191009, end: 20191015
  77. OLIMEL [Concomitant]
     Active Substance: AMINO ACIDS\DEXTROSE\SOYBEAN OIL
     Route: 042
     Dates: start: 20191017, end: 20191019
  78. OLIMEL [Concomitant]
     Active Substance: AMINO ACIDS\DEXTROSE\SOYBEAN OIL
     Route: 042
     Dates: start: 20191029, end: 20191031
  79. OLIMEL [Concomitant]
     Active Substance: AMINO ACIDS\DEXTROSE\SOYBEAN OIL
     Route: 042
     Dates: start: 20191201, end: 20191201
  80. OLIMEL [Concomitant]
     Active Substance: AMINO ACIDS\DEXTROSE\SOYBEAN OIL
     Route: 042
     Dates: start: 20191218, end: 20191218
  81. OLIMEL [Concomitant]
     Active Substance: AMINO ACIDS\DEXTROSE\SOYBEAN OIL
     Route: 042
     Dates: start: 20200211, end: 20200212
  82. OLIMEL [Concomitant]
     Active Substance: AMINO ACIDS\DEXTROSE\SOYBEAN OIL
     Route: 042
     Dates: start: 20200213, end: 20200217
  83. OLIMEL [Concomitant]
     Active Substance: AMINO ACIDS\DEXTROSE\SOYBEAN OIL
     Route: 042
     Dates: start: 20200304, end: 20200307
  84. OLIMEL [Concomitant]
     Active Substance: AMINO ACIDS\DEXTROSE\SOYBEAN OIL
     Route: 042
     Dates: start: 20200302, end: 20200303
  85. OMEPRAZOLE [Concomitant]
     Active Substance: OMEPRAZOLE
     Route: 042
     Dates: start: 20191002, end: 20191219
  86. OMEPRAZOLE [Concomitant]
     Active Substance: OMEPRAZOLE
     Route: 048
     Dates: start: 20191220
  87. OMEPRAZOLE [Concomitant]
     Active Substance: OMEPRAZOLE
     Route: 042
     Dates: start: 20191016, end: 20191019
  88. OMEPRAZOLE [Concomitant]
     Active Substance: OMEPRAZOLE
     Route: 042
     Dates: start: 20191220, end: 20191220
  89. ONDANSETRON [Concomitant]
     Active Substance: ONDANSETRON
     Route: 042
     Dates: start: 20191003, end: 20191003
  90. ONDANSETRON [Concomitant]
     Active Substance: ONDANSETRON
     Route: 042
     Dates: start: 20191016, end: 20191016
  91. ONDANSETRON [Concomitant]
     Active Substance: ONDANSETRON
     Route: 048
     Dates: start: 20210524, end: 20210603
  92. PREGABALIN [Concomitant]
     Active Substance: PREGABALIN
     Route: 042
     Dates: start: 20191022, end: 20191107
  93. SACCHAROMYCES CEREVISIAE [Concomitant]
     Active Substance: SACCHAROMYCES CEREVISIAE
     Route: 048
     Dates: start: 20191013, end: 20191015
  94. LUFTAL [SIMETICONE] [Concomitant]
     Indication: Flatulence
     Route: 048
     Dates: start: 20191016, end: 20191017
  95. LUFTAL [SIMETICONE] [Concomitant]
     Route: 048
     Dates: start: 20191017, end: 20191019
  96. LUFTAL [SIMETICONE] [Concomitant]
     Route: 048
     Dates: start: 20191109, end: 20191220
  97. LUFTAL [SIMETICONE] [Concomitant]
     Route: 048
     Dates: start: 20191220, end: 20210826
  98. LUFTAL [SIMETICONE] [Concomitant]
     Route: 048
     Dates: start: 20200217, end: 20200218
  99. LUFTAL [SIMETICONE] [Concomitant]
     Route: 048
     Dates: start: 20200211, end: 20200217
  100. LUFTAL [SIMETICONE] [Concomitant]
     Dates: start: 20200223, end: 20200309
  101. TEICOPLANIN [Concomitant]
     Active Substance: TEICOPLANIN
     Route: 042
     Dates: start: 20191020, end: 20191022
  102. TEICOPLANIN [Concomitant]
     Active Substance: TEICOPLANIN
     Route: 042
     Dates: start: 20191031, end: 20191031
  103. TEICOPLANIN [Concomitant]
     Active Substance: TEICOPLANIN
     Route: 042
     Dates: start: 20191023, end: 20191029
  104. TEICOPLANIN [Concomitant]
     Active Substance: TEICOPLANIN
     Route: 042
     Dates: start: 20191101, end: 20191107
  105. TEICOPLANIN [Concomitant]
     Active Substance: TEICOPLANIN
     Route: 042
     Dates: start: 20191130, end: 20191203
  106. POTASSIUM THIOCYANATE [Concomitant]
     Active Substance: POTASSIUM THIOCYANATE
     Route: 048
     Dates: start: 20191007, end: 20191008
  107. TRAMADOL HYDROCHLORIDE [Concomitant]
     Active Substance: TRAMADOL HYDROCHLORIDE
     Route: 042
     Dates: start: 20191001, end: 20191004
  108. B1 VITAMIN [Concomitant]
     Route: 042
     Dates: start: 20191005, end: 20191010
  109. B1 VITAMIN [Concomitant]
     Route: 042
     Dates: start: 20191011, end: 20191014
  110. B1 VITAMIN [Concomitant]
     Route: 042
     Dates: start: 20200212, end: 20200214
  111. B1 VITAMIN [Concomitant]
     Route: 042
     Dates: start: 20200215, end: 20200218
  112. VITAMINS [Concomitant]
     Active Substance: VITAMINS
     Route: 042
     Dates: start: 20191005, end: 20191031
  113. VITAMINS [Concomitant]
     Active Substance: VITAMINS
     Route: 042
     Dates: start: 20200212, end: 20200212
  114. VITAMINS [Concomitant]
     Active Substance: VITAMINS
     Route: 042
     Dates: start: 20200213, end: 20200218
  115. VITAMINS [Concomitant]
     Active Substance: VITAMINS
     Route: 042
     Dates: start: 20200219, end: 20200301
  116. VITAMINS [Concomitant]
     Active Substance: VITAMINS
     Dates: start: 20200306, end: 20200307
  117. DOMPERIDONE [Concomitant]
     Active Substance: DOMPERIDONE
     Indication: Nausea
     Route: 048
     Dates: start: 20191220
  118. DOMPERIDONE [Concomitant]
     Active Substance: DOMPERIDONE
     Indication: Gastrointestinal pain
     Route: 048
     Dates: start: 20200211, end: 20200218
  119. DOMPERIDONE [Concomitant]
     Active Substance: DOMPERIDONE
     Route: 048
     Dates: start: 20200219, end: 20200219
  120. DOMPERIDONE [Concomitant]
     Active Substance: DOMPERIDONE
     Route: 048
     Dates: start: 20200220, end: 20210826
  121. PREDNISONE [Concomitant]
     Active Substance: PREDNISONE
     Indication: Prophylaxis
     Route: 048
     Dates: start: 20191219
  122. PREDNISONE [Concomitant]
     Active Substance: PREDNISONE
     Route: 048
     Dates: start: 20200211, end: 20200219
  123. PREDNISONE [Concomitant]
     Active Substance: PREDNISONE
     Route: 048
     Dates: start: 20200221, end: 20200221
  124. PREDNISONE [Concomitant]
     Active Substance: PREDNISONE
     Route: 048
     Dates: start: 20200309, end: 20200316
  125. PREDNISONE [Concomitant]
     Active Substance: PREDNISONE
     Route: 048
     Dates: start: 20200316, end: 20200424
  126. PREGALIN [Concomitant]
     Route: 048
     Dates: start: 20191109, end: 20191109
  127. ZOLPIDEM [Concomitant]
     Active Substance: ZOLPIDEM TARTRATE
     Route: 048
     Dates: start: 20191016, end: 20191020
  128. BUDESONIDE [Concomitant]
     Active Substance: BUDESONIDE
     Route: 045
     Dates: start: 20191128, end: 20191129
  129. CIPROFLOXACIN [Concomitant]
     Active Substance: CIPROFLOXACIN
     Route: 042
     Dates: start: 20191203, end: 20191210
  130. POTASSIUM CHLORIDE [Concomitant]
     Active Substance: POTASSIUM CHLORIDE
     Indication: Hypokalaemia
     Route: 048
     Dates: start: 20191016, end: 20191018
  131. POTASSIUM CHLORIDE [Concomitant]
     Active Substance: POTASSIUM CHLORIDE
     Route: 048
     Dates: start: 20191219, end: 20191220
  132. POTASSIUM CHLORIDE [Concomitant]
     Active Substance: POTASSIUM CHLORIDE
     Route: 048
     Dates: start: 20200211, end: 20200212
  133. POTASSIUM CHLORIDE [Concomitant]
     Active Substance: POTASSIUM CHLORIDE
     Route: 048
     Dates: start: 20200214, end: 20200218
  134. POTASSIUM CHLORIDE [Concomitant]
     Active Substance: POTASSIUM CHLORIDE
     Route: 048
     Dates: start: 20200303
  135. MAXIDRATE [Concomitant]
     Route: 045
     Dates: start: 20191214, end: 20191215
  136. ALLEGRA [Concomitant]
     Active Substance: FEXOFENADINE HYDROCHLORIDE
     Route: 048
     Dates: start: 20191129, end: 20191129
  137. FLUCONAZOLE [Concomitant]
     Active Substance: FLUCONAZOLE
     Route: 042
     Dates: start: 20191129, end: 20191129
  138. GLYCERIN [Concomitant]
     Active Substance: GLYCERIN
     Route: 054
     Dates: start: 20191020, end: 20191020
  139. GLYCERIN [Concomitant]
     Active Substance: GLYCERIN
     Route: 054
     Dates: start: 20191102, end: 20191106
  140. GLYCERIN [Concomitant]
     Active Substance: GLYCERIN
     Route: 054
     Dates: start: 20191207, end: 20191208
  141. GLYCERIN [Concomitant]
     Active Substance: GLYCERIN
     Route: 054
     Dates: start: 20191210, end: 20191211
  142. GLYCERIN [Concomitant]
     Active Substance: GLYCERIN
     Route: 054
     Dates: start: 20191213, end: 20191219
  143. OLIG TRAT [Concomitant]
     Route: 042
     Dates: start: 20191005, end: 20191018
  144. OLIG TRAT [Concomitant]
     Route: 042
     Dates: start: 20191029, end: 20191202
  145. OLIG TRAT [Concomitant]
     Route: 042
     Dates: start: 20191219, end: 20191219
  146. OLIG TRAT [Concomitant]
     Route: 042
     Dates: start: 20200212, end: 20200301
  147. METOCLOPRAMIDE HYDROCHLORIDE [Concomitant]
     Active Substance: METOCLOPRAMIDE HYDROCHLORIDE
     Route: 042
     Dates: start: 20191101, end: 20191102
  148. METOCLOPRAMIDE HYDROCHLORIDE [Concomitant]
     Active Substance: METOCLOPRAMIDE HYDROCHLORIDE
     Route: 042
     Dates: start: 20191103, end: 20191130
  149. METRONIDAZOLE [Concomitant]
     Active Substance: METRONIDAZOLE
     Route: 042
     Dates: start: 20191001, end: 20191003
  150. MORPHINE [Concomitant]
     Active Substance: MORPHINE
     Route: 042
     Dates: start: 20191004, end: 20191006
  151. MORPHINE [Concomitant]
     Active Substance: MORPHINE
     Route: 042
     Dates: start: 20191010, end: 20191010
  152. MORPHINE [Concomitant]
     Active Substance: MORPHINE
     Route: 042
     Dates: start: 20191016, end: 20191018
  153. SANDOSTATIN [Concomitant]
     Active Substance: OCTREOTIDE ACETATE
     Route: 042
     Dates: start: 20191203, end: 20191210
  154. RINGER LACTATED [Concomitant]
     Route: 042
     Dates: start: 20191201, end: 20191201
  155. UBIQUINONA [Concomitant]
     Route: 042
     Dates: start: 20191203, end: 20191206
  156. UBIQUINONA [Concomitant]
     Route: 042
     Dates: start: 20191208, end: 20191218
  157. FAMOTIDINE [Concomitant]
     Active Substance: FAMOTIDINE
     Route: 048
     Dates: start: 20200127, end: 20200127
  158. FAMOTIDINE [Concomitant]
     Active Substance: FAMOTIDINE
     Route: 048
     Dates: start: 20200330, end: 20200330
  159. DIPHENHYDRAMINE [Concomitant]
     Active Substance: DIPHENHYDRAMINE
     Route: 042
     Dates: start: 20200127, end: 20200127
  160. DIPHENHYDRAMINE [Concomitant]
     Active Substance: DIPHENHYDRAMINE
     Route: 042
     Dates: start: 20200106, end: 20200106
  161. FAMOTIDINA [Concomitant]
     Route: 048
     Dates: start: 20200106, end: 20200106
  162. FAMOTIDINA [Concomitant]
     Route: 048
     Dates: start: 20200416, end: 20200416
  163. ENOXAPARIN SODIUM [Concomitant]
     Active Substance: ENOXAPARIN SODIUM
     Route: 058
     Dates: start: 20200214, end: 20200218
  164. ENOXAPARIN SODIUM [Concomitant]
     Active Substance: ENOXAPARIN SODIUM
     Route: 058
     Dates: start: 20200220, end: 20200308
  165. FUROSEMIDE\POTASSIUM CHLORIDE [Concomitant]
     Active Substance: FUROSEMIDE\POTASSIUM CHLORIDE
     Route: 048
     Dates: start: 20200211, end: 20200212
  166. LOSEC [Concomitant]
     Active Substance: OMEPRAZOLE
     Route: 048
     Dates: start: 20200212, end: 20200227
  167. METICORTEN [Concomitant]
     Active Substance: PREDNISONE
     Route: 048
     Dates: start: 20200221, end: 20200221
  168. METAMIZOLE SODIUM [Concomitant]
     Active Substance: METAMIZOLE SODIUM
     Route: 042
     Dates: start: 20200220, end: 20200220
  169. METAMIZOLE SODIUM [Concomitant]
     Active Substance: METAMIZOLE SODIUM
     Route: 042
     Dates: start: 20200227, end: 20200227
  170. AMINO ACIDS\DEXTROSE\ELECTROLYTES NOS\SOYBEAN OIL [Concomitant]
     Active Substance: AMINO ACIDS\DEXTROSE\ELECTROLYTES NOS\SOYBEAN OIL
     Route: 042
     Dates: start: 20200218, end: 20200302
  171. PROBIATOP [Concomitant]
     Route: 048
     Dates: start: 20200216, end: 20200217
  172. MAGNESIUM SULFATE [Concomitant]
     Active Substance: MAGNESIUM SULFATE
     Route: 048
     Dates: start: 20200211, end: 20200212
  173. MAGNESIUM SULFATE [Concomitant]
     Active Substance: MAGNESIUM SULFATE
     Route: 048
     Dates: start: 20200103, end: 20210722
  174. RACECADOTRIL [Concomitant]
     Active Substance: RACECADOTRIL
     Route: 048
     Dates: start: 20200222, end: 20200222
  175. TRAMADOL [Concomitant]
     Active Substance: TRAMADOL
     Route: 042
     Dates: start: 20200216, end: 20200216
  176. ERYTHROMYCIN [Concomitant]
     Active Substance: ERYTHROMYCIN
     Route: 042
     Dates: start: 20200226, end: 20200307
  177. DIPHENHYDRAMINE [Concomitant]
     Active Substance: DIPHENHYDRAMINE
     Route: 042
     Dates: start: 20200330, end: 20200330
  178. DIPHENHYDRAMINE [Concomitant]
     Active Substance: DIPHENHYDRAMINE
     Route: 042
     Dates: start: 20200416, end: 20200416
  179. SALINE [Concomitant]
     Active Substance: SODIUM CHLORIDE
     Indication: Acute kidney injury
     Route: 042
     Dates: start: 20210524, end: 20210526

REACTIONS (2)
  - Intestinal obstruction [Recovered/Resolved]
  - Colitis [Recovering/Resolving]

NARRATIVE: CASE EVENT DATE: 20190918
